FAERS Safety Report 9370035 (Version 2)
Quarter: 2013Q3

REPORT INFORMATION
  Report Type: Report from Study
  Country: US (occurrence: US)
  Receive Date: 20130626
  Receipt Date: 20130703
  Transmission Date: 20140515
  Serious: Yes (Hospitalization)
  Sender: FDA-Public Use
  Company Number: US-ACTELION-A-NJ2013-84965

PATIENT
  Age: 12 Year
  Sex: Male

DRUGS (3)
  1. TRACLEER [Suspect]
     Indication: PULMONARY ARTERIAL HYPERTENSION
     Dosage: 62.5 MG, BID
     Route: 048
  2. SILDENAFIL [Concomitant]
  3. ASPIRIN [Concomitant]
     Dosage: 81 MG, UNK

REACTIONS (4)
  - Fall [Unknown]
  - Pulmonary arterial pressure increased [Recovering/Resolving]
  - Pulmonary hypertension [Recovering/Resolving]
  - Syncope [Recovering/Resolving]
